FAERS Safety Report 7218245-4 (Version None)
Quarter: 2011Q1

REPORT INFORMATION
  Report Type: 
  Country: None (occurrence: None)
  Receive Date: 20110110
  Receipt Date: 20110105
  Transmission Date: 20110831
  Serious: Yes (Other)
  Sender: FDA-Public Use
  Company Number: JP-PFIZER INC-2008151631

PATIENT
  Age: 55 Year
  Sex: Female

DRUGS (9)
  1. MAGNESIUM OXIDE [Concomitant]
     Dosage: 500 MG, 2X/DAY
     Route: 048
  2. RIFABUTIN [Suspect]
     Indication: MYCOBACTERIUM AVIUM COMPLEX INFECTION
     Dosage: 300 MG, 1X/DAY
     Dates: start: 20081026, end: 20081101
  3. CLARITHROMYCIN [Concomitant]
     Indication: MYCOBACTERIUM AVIUM COMPLEX INFECTION
     Dosage: 600 MG, 3X/DAY
     Route: 048
     Dates: start: 20060908
  4. MUCODYNE [Concomitant]
     Dosage: 500 MG, 3X/DAY
     Route: 048
     Dates: start: 20070927
  5. FERROUS CITRATE [Concomitant]
     Dosage: 50 MG, 1X/DAY
     Route: 048
     Dates: start: 20020910
  6. MUCOSOLVAN [Concomitant]
     Dosage: 15 MG, 3X/DAY
     Route: 048
     Dates: start: 20020813
  7. SELBEX [Concomitant]
     Dosage: 50 MG, 3X/DAY
     Route: 048
  8. RIFABUTIN [Suspect]
     Dosage: 150 MG, 1X/DAY
     Dates: start: 20081121, end: 20081122
  9. ESANBUTOL [Concomitant]
     Indication: MYCOBACTERIUM AVIUM COMPLEX INFECTION
     Dosage: 500 MG, 1X/DAY
     Route: 048
     Dates: start: 20060908

REACTIONS (7)
  - TREMOR [None]
  - HYPOAESTHESIA [None]
  - DIARRHOEA [None]
  - LOSS OF CONSCIOUSNESS [None]
  - CHILLS [None]
  - HYPERHIDROSIS [None]
  - DECREASED APPETITE [None]
